FAERS Safety Report 9549943 (Version 2)
Quarter: 2013Q3

REPORT INFORMATION
  Report Type: Report from Study
  Country: BR (occurrence: BR)
  Receive Date: 20130924
  Receipt Date: 20130924
  Transmission Date: 20140515
  Serious: Yes (Other)
  Sender: FDA-Public Use
  Company Number: ALCN2013BR002492

PATIENT
  Age: 84 Year
  Sex: Male

DRUGS (2)
  1. TRAVATAN [Suspect]
     Indication: GLAUCOMA
     Route: 047
  2. COMBIGAN [Concomitant]
     Indication: GLAUCOMA
     Route: 047

REACTIONS (1)
  - Blindness unilateral [Not Recovered/Not Resolved]
